FAERS Safety Report 8237146-6 (Version None)
Quarter: 2012Q1

REPORT INFORMATION
  Report Type: 
  Country: None (occurrence: None)
  Receive Date: 20120327
  Receipt Date: 20120320
  Transmission Date: 20120608
  Serious: No
  Sender: FDA-Public Use
  Company Number: US-PFIZER INC-2012073887

PATIENT
  Sex: Female

DRUGS (4)
  1. PROZAC [Suspect]
     Dosage: UNK
  2. XANAX [Suspect]
     Dosage: UNK
  3. TRAMADOL HCL [Suspect]
     Dosage: UNK
  4. LYRICA [Suspect]
     Dosage: UNK

REACTIONS (4)
  - VITAMIN D DEFICIENCY [None]
  - GAIT DISTURBANCE [None]
  - IRON DEFICIENCY ANAEMIA [None]
  - PAIN IN EXTREMITY [None]
